FAERS Safety Report 17687876 (Version 1)
Quarter: 2020Q2

REPORT INFORMATION
  Report Type: Spontaneous
  Country: US (occurrence: US)
  Receive Date: 20200421
  Receipt Date: 20200421
  Transmission Date: 20200714
  Serious: No
  Sender: FDA-Public Use
  Company Number: US-SA-2020SA101870

PATIENT
  Sex: Female

DRUGS (17)
  1. MONTELUKAST [Concomitant]
     Active Substance: MONTELUKAST SODIUM
  2. AMOXICILLIN. [Concomitant]
     Active Substance: AMOXICILLIN
  3. AZITHROMYCIN ANHYDROUS. [Concomitant]
     Active Substance: AZITHROMYCIN ANHYDROUS
     Dosage: POW
  4. MELOXICAM. [Concomitant]
     Active Substance: MELOXICAM
  5. PRALUENT [Suspect]
     Active Substance: ALIROCUMAB
     Indication: OSTEOARTHRITIS
     Dosage: 150 MG, QOW
     Route: 058
  6. OMEPRAZOLE. [Concomitant]
     Active Substance: OMEPRAZOLE
     Dosage: CPD
  7. AMOXI-CLAV [Concomitant]
     Active Substance: AMOXICILLIN\CLAVULANATE POTASSIUM
  8. PROAIR HFA [Concomitant]
     Active Substance: ALBUTEROL SULFATE
     Dosage: AER
  9. TIZANIDINE. [Concomitant]
     Active Substance: TIZANIDINE
  10. DOXYCYCLINE HYCLATE. [Concomitant]
     Active Substance: DOXYCYCLINE HYCLATE
  11. BENZONATATE. [Concomitant]
     Active Substance: BENZONATATE
  12. CRESTOR [Concomitant]
     Active Substance: ROSUVASTATIN CALCIUM
  13. QVAR [Concomitant]
     Active Substance: BECLOMETHASONE DIPROPIONATE
     Dosage: AER
  14. ROSUVASTATIN. [Concomitant]
     Active Substance: ROSUVASTATIN
  15. BACITRACIN/POLYMYXIN B [Concomitant]
  16. BUPROPION HCL [Concomitant]
     Active Substance: BUPROPION HYDROCHLORIDE
     Dosage: TABLET 150 MG, XL
  17. ZETIA [Concomitant]
     Active Substance: EZETIMIBE

REACTIONS (1)
  - Drug ineffective [Unknown]
